FAERS Safety Report 9404748 (Version 6)
Quarter: 2013Q4

REPORT INFORMATION
  Report Type: Spontaneous
  Country: US (occurrence: US)
  Receive Date: 20130717
  Receipt Date: 20131010
  Transmission Date: 20140711
  Serious: Yes (Hospitalization, Disabling, Other)
  Sender: FDA-Public Use
  Company Number: US-PFIZER INC-2013206047

PATIENT
  Age: 58 Year
  Sex: Female

DRUGS (13)
  1. RAPAMUNE [Suspect]
     Indication: IMMUNOSUPPRESSION
     Dosage: UNK
     Dates: start: 200509, end: 20060210
  2. RAPAMUNE [Suspect]
     Dosage: 2 MG, 1X/DAY
     Dates: start: 20051116
  3. RAPAMUNE [Suspect]
     Dosage: 1 MG, 1X/DAY
     Dates: start: 20051203
  4. PREDNISONE [Suspect]
     Indication: ORGANISING PNEUMONIA
     Dosage: 2.5 MG, 1X/DAY
     Dates: start: 20050426
  5. PREDNISONE [Suspect]
     Dosage: 10 MG, 2X/DAY
     Dates: start: 20060124, end: 20060214
  6. PREDNISONE [Suspect]
     Dosage: 20 MG, UNK
     Dates: start: 20110310
  7. PREDNISONE [Suspect]
     Dosage: 60 MG, 1X/DAY
     Dates: start: 20110527, end: 20110609
  8. PREDNISONE [Suspect]
     Dosage: 80 MG, 1X/DAY
     Dates: start: 20110617
  9. PREDNISONE [Suspect]
     Dosage: 40 MG, 1X/DAY
     Dates: start: 20110605, end: 20110618
  10. PREDNISONE [Suspect]
     Dosage: 5 MG, UNK
     Dates: start: 20110801
  11. PREDNISONE [Suspect]
     Dosage: UNK
     Dates: end: 201112
  12. TYLENOL [Concomitant]
     Dosage: UNK
  13. CODEINE [Concomitant]
     Dosage: UNK

REACTIONS (6)
  - Organising pneumonia [Unknown]
  - Pneumonitis [Unknown]
  - Spinal compression fracture [Unknown]
  - Osteoporosis [Unknown]
  - Sleep disorder [Unknown]
  - Oedema [Unknown]
